FAERS Safety Report 18560489 (Version 1)
Quarter: 2020Q4

REPORT INFORMATION
  Report Type: Spontaneous
  Country: US (occurrence: US)
  Receive Date: 20201130
  Receipt Date: 20201130
  Transmission Date: 20210114
  Serious: No
  Sender: FDA-Public Use
  Company Number: US-TAKEDA-2020TUS052473

PATIENT
  Sex: Female
  Weight: 72.56 kg

DRUGS (10)
  1. GAMMAGARD LIQUID [Suspect]
     Active Substance: HUMAN IMMUNOGLOBULIN G
     Indication: IMMUNODEFICIENCY COMMON VARIABLE
     Dosage: 40 GRAM, Q4WEEKS
     Route: 042
     Dates: start: 20190927
  2. DIPHENHYDRAMINE. [Concomitant]
     Active Substance: DIPHENHYDRAMINE
  3. LIDOCAINE. [Concomitant]
     Active Substance: LIDOCAINE
  4. SODIUM CHLORIDE. [Concomitant]
     Active Substance: SODIUM CHLORIDE
  5. ACETAMINOPHEN. [Concomitant]
     Active Substance: ACETAMINOPHEN
  6. HEPARIN [Concomitant]
     Active Substance: HEPARIN SODIUM
  7. PHENTERMINE. [Concomitant]
     Active Substance: PHENTERMINE
  8. ROSUVASTATIN. [Concomitant]
     Active Substance: ROSUVASTATIN
  9. EPINEPHRINE. [Concomitant]
     Active Substance: EPINEPHRINE
  10. SALINE NASAL MIST [Concomitant]

REACTIONS (2)
  - Exposure to SARS-CoV-2 [Unknown]
  - Suspected COVID-19 [Unknown]
